FAERS Safety Report 9904840 (Version 1)
Quarter: 2014Q1

REPORT INFORMATION
  Report Type: Spontaneous
  Country: US (occurrence: None)
  Receive Date: 20140210
  Receipt Date: 20140210
  Transmission Date: 20141002
  Serious: Yes (Other)
  Sender: FDA-Public Use
  Company Number: DSA_47033_2011

PATIENT
  Age: 40 Year
  Sex: Male

DRUGS (1)
  1. BUPROPION HYDROCHLORIDE [Suspect]
     Indication: ASTHENIA
     Route: 048

REACTIONS (22)
  - Convulsion [None]
  - Gastrooesophageal reflux disease [None]
  - Abdominal pain upper [None]
  - Vomiting [None]
  - Migraine [None]
  - Occipital neuralgia [None]
  - Speech disorder [None]
  - Hearing impaired [None]
  - Hostility [None]
  - Anger [None]
  - Mental disorder [None]
  - Screaming [None]
  - Photopsia [None]
  - Head injury [None]
  - Unresponsive to stimuli [None]
  - Muscle spasms [None]
  - Torticollis [None]
  - Hallucination [None]
  - Rash [None]
  - Aggression [None]
  - Wrong technique in drug usage process [None]
  - Laryngospasm [None]
